FAERS Safety Report 4389429-8 (Version None)
Quarter: 2004Q2

REPORT INFORMATION
  Report Type: 
  Country: None (occurrence: None)
  Receive Date: 20040630
  Receipt Date: 20040618
  Transmission Date: 20050107
  Serious: Yes (Hospitalization)
  Sender: FDA-Public Use
  Company Number: GB-JNJFOC-20040604688

PATIENT
  Age: 68 Year
  Sex: Female

DRUGS (9)
  1. REMICADE [Suspect]
     Indication: RHEUMATOID ARTHRITIS
     Dosage: 200 MG - 300 MG
     Dates: start: 20020726
  2. METHOTREXATE [Concomitant]
  3. FOLIC ACID [Concomitant]
  4. MAXOLON [Concomitant]
  5. IBUPROFEN [Concomitant]
  6. CO-PROXAMOL (APOREX) [Concomitant]
  7. ALLOPURINOL [Concomitant]
  8. CIMETIDINE [Concomitant]
  9. MODIURETIC (MODURETIC) [Concomitant]

REACTIONS (5)
  - CELLULITIS [None]
  - DIARRHOEA [None]
  - FEELING ABNORMAL [None]
  - PRODUCTIVE COUGH [None]
  - VOMITING [None]
